FAERS Safety Report 8804944 (Version 1)
Quarter: 2012Q4

REPORT INFORMATION
  Report Type: 
  Country: IL (occurrence: IL)
  Receive Date: 20120924
  Receipt Date: 20120924
  Transmission Date: 20130627
  Serious: Yes (Other)
  Sender: FDA-Public Use
  Company Number: IL-TEVA-358572ISR

PATIENT
  Sex: Female

DRUGS (1)
  1. ATORVASTATIN [Suspect]

REACTIONS (2)
  - Convulsion [Unknown]
  - Dysstasia [Unknown]
